FAERS Safety Report 14245073 (Version 5)
Quarter: 2018Q1

REPORT INFORMATION
  Report Type: Report from Study
  Country: IT (occurrence: IT)
  Receive Date: 20171202
  Receipt Date: 20180309
  Transmission Date: 20180508
  Serious: Yes (Other)
  Sender: FDA-Public Use
  Company Number: IT-ACCORD-061436

PATIENT
  Age: 83 Year
  Sex: Female

DRUGS (5)
  1. TRAMADOL/TRAMADOL HYDROCHLORIDE [Interacting]
     Active Substance: TRAMADOL HYDROCHLORIDE
     Indication: PRODUCT USED FOR UNKNOWN INDICATION
     Route: 048
  2. RAMIPRIL. [Suspect]
     Active Substance: RAMIPRIL
     Indication: HYPERTENSION
     Dosage: ALSO RECEIVED 1.5 DF (AT HOME)?5 MG, QD
     Route: 048
  3. LANIZAC [Interacting]
     Active Substance: RANITIDINE HYDROCHLORIDE
     Indication: ARTHRALGIA
     Route: 048
  4. LENIZAK MENARINI INTERNATIONAL OPERATIONS LUXEMBOURG S.A. [Interacting]
     Active Substance: DEXKETOPROFEN\TRAMADOL
     Indication: ARTHRALGIA
     Dosage: 1 DF AS NECESSARY
     Route: 048
  5. DEXKETOPROFEN [Interacting]
     Active Substance: DEXKETOPROFEN
     Indication: PRODUCT USED FOR UNKNOWN INDICATION
     Route: 065

REACTIONS (6)
  - Hypertensive crisis [Recovering/Resolving]
  - Vomiting [Recovering/Resolving]
  - Nausea [Recovering/Resolving]
  - Vertigo [Recovering/Resolving]
  - Malaise [Recovering/Resolving]
  - Drug interaction [Unknown]

NARRATIVE: CASE EVENT DATE: 20171112
